FAERS Safety Report 15575655 (Version 1)
Quarter: 2018Q4

REPORT INFORMATION
  Report Type: Spontaneous
  Country: US (occurrence: US)
  Receive Date: 20181101
  Receipt Date: 20181101
  Transmission Date: 20190205
  Serious: Yes (Hospitalization)
  Sender: FDA-Public Use
  Company Number: None

PATIENT
  Sex: Female

DRUGS (11)
  1. IBRANCE [Suspect]
     Active Substance: PALBOCICLIB
     Indication: NEOPLASM MALIGNANT
     Route: 048
     Dates: start: 20170902
  2. CALCIUM [Concomitant]
     Active Substance: CALCIUM
  3. BIOTIN [Concomitant]
     Active Substance: BIOTIN
  4. ALLOPURINOL. [Concomitant]
     Active Substance: ALLOPURINOL
  5. KLOR-CON [Concomitant]
     Active Substance: POTASSIUM CHLORIDE
  6. ASPIRIN. [Concomitant]
     Active Substance: ASPIRIN
  7. LETROZOLE. [Concomitant]
     Active Substance: LETROZOLE
  8. IBRANCE [Suspect]
     Active Substance: PALBOCICLIB
     Indication: METASTASIS
     Route: 048
     Dates: start: 20170902
  9. SERTRALINE [Concomitant]
     Active Substance: SERTRALINE HYDROCHLORIDE
  10. FUROSEMIDE. [Concomitant]
     Active Substance: FUROSEMIDE
  11. MULTI-VITE [Concomitant]

REACTIONS (3)
  - Alopecia [None]
  - Therapy cessation [None]
  - Infection [None]
